FAERS Safety Report 10178246 (Version 1)
Quarter: 2014Q2

REPORT INFORMATION
  Report Type: Report from Study
  Country: US (occurrence: US)
  Receive Date: 20140519
  Receipt Date: 20140519
  Transmission Date: 20141212
  Serious: Yes (Other)
  Sender: FDA-Public Use
  Company Number: PHEH2014US009881

PATIENT
  Sex: Female

DRUGS (11)
  1. TASIGNA [Suspect]
     Indication: CHRONIC MYELOID LEUKAEMIA
     Dosage: 150 MG, BID
     Route: 048
     Dates: start: 20120710, end: 20120803
  2. PROMETHAZINE [Concomitant]
  3. TRETINOIN [Concomitant]
     Dosage: UNK
  4. HYDROQUINONE [Concomitant]
  5. XANAX [Concomitant]
  6. VICODIN [Concomitant]
  7. NASONEX [Concomitant]
  8. CYCLOBENZAPRINE [Concomitant]
  9. TRIAMTERENE/HCTZ [Concomitant]
  10. WELLBUTRIN [Concomitant]
  11. PROAIR (FLUTICASONE PROPIONATE) [Concomitant]

REACTIONS (1)
  - Shock [Unknown]
